FAERS Safety Report 21073803 (Version 2)
Quarter: 2025Q2

REPORT INFORMATION
  Report Type: Spontaneous
  Country: CA (occurrence: CA)
  Receive Date: 20220713
  Receipt Date: 20250602
  Transmission Date: 20250716
  Serious: Yes (Death, Hospitalization, Congenital Anomaly, Other)
  Sender: AUROBINDO
  Company Number: CA-AUROBINDO-AUR-APL-2022-025263

PATIENT
  Weight: 1 kg

DRUGS (4)
  1. VALSARTAN [Suspect]
     Active Substance: VALSARTAN
     Indication: Product used for unknown indication
     Route: 064
  2. VALSARTAN [Suspect]
     Active Substance: VALSARTAN
     Indication: Hypertension
  3. LASIX [Suspect]
     Active Substance: FUROSEMIDE
     Indication: Product used for unknown indication
     Route: 064
  4. LASIX [Suspect]
     Active Substance: FUROSEMIDE
     Indication: Hypertension

REACTIONS (12)
  - Hypocalvaria [Fatal]
  - Premature baby [Fatal]
  - Foetal exposure during pregnancy [Fatal]
  - Neonatal anuria [Fatal]
  - Apgar score low [Fatal]
  - Low birth weight baby [Fatal]
  - Limb deformity [Unknown]
  - Renal tubular dysfunction [Unknown]
  - Neonatal hypotension [Unknown]
  - Neonatal respiratory failure [Unknown]
  - Potter^s syndrome [Unknown]
  - Foetal exposure during pregnancy [Unknown]
